FAERS Safety Report 17563428 (Version 1)
Quarter: 2020Q1

REPORT INFORMATION
  Report Type: Spontaneous
  Country: US (occurrence: US)
  Receive Date: 20200319
  Receipt Date: 20200319
  Transmission Date: 20200409
  Serious: No
  Sender: FDA-Public Use
  Company Number: US-CATALYST PHARMACEUTICALS, INC-2020CAT00089

PATIENT
  Sex: Male

DRUGS (3)
  1. FIRDAPSE [Suspect]
     Active Substance: AMIFAMPRIDINE
     Dosage: 20 MG, 2X/DAY (MORNING AND EVENING)
  2. FIRDAPSE [Suspect]
     Active Substance: AMIFAMPRIDINE
     Dosage: 15 MG, 2X/DAY (4 HOURS AFTER 20 MG MORNING DOSE AND THEN REPEATED 4 HOURS LATER)
  3. MESTINON [Concomitant]
     Active Substance: PYRIDOSTIGMINE BROMIDE
     Dosage: 60 MG, 4X/DAY (WITH EACH FIRDAPSE DOSE)

REACTIONS (1)
  - Asthenia [Not Recovered/Not Resolved]
